FAERS Safety Report 23526027 (Version 1)
Quarter: 2024Q1

REPORT INFORMATION
  Report Type: Spontaneous
  Country: US (occurrence: US)
  Receive Date: 20240215
  Receipt Date: 20240215
  Transmission Date: 20240410
  Serious: Yes (Hospitalization, Other)
  Sender: FDA-Public Use
  Company Number: CLT-US-2024-0008-472636

PATIENT
  Age: 86 Year
  Sex: Male

DRUGS (3)
  1. MEMANTINE [Suspect]
     Active Substance: MEMANTINE
     Indication: Dementia Alzheimer^s type
     Dosage: 5 MG TWICE A DAY
  2. METOPROLOL SUCCINATE [Concomitant]
     Active Substance: METOPROLOL SUCCINATE
  3. MECLIZINE [Concomitant]
     Active Substance: MECLIZINE HYDROCHLORIDE
     Indication: Dizziness
     Dosage: 12.5 MG EVERY 8 HOURS AS NEEDED

REACTIONS (10)
  - Overdose [Unknown]
  - Hypertensive crisis [Recovered/Resolved]
  - Disturbance in social behaviour [Recovered/Resolved]
  - Echolalia [Recovered/Resolved]
  - Product name confusion [Unknown]
  - Mental status changes [Recovered/Resolved]
  - Hallucination, auditory [Recovered/Resolved]
  - Agitation [Recovered/Resolved]
  - Somnolence [Recovered/Resolved]
  - Respiratory disorder [Recovered/Resolved]
